FAERS Safety Report 5105137-X (Version None)
Quarter: 2006Q3

REPORT INFORMATION
  Report Type: 
  Country: None (occurrence: None)
  Receive Date: 20060914
  Receipt Date: 20060803
  Transmission Date: 20061208
  Serious: Yes (Hospitalization)
  Sender: FDA-Public Use
  Company Number: FR-MERCK-0608FRA00014

PATIENT
  Age: 79 Year
  Sex: Male

DRUGS (6)
  1. COZAAR [Suspect]
     Route: 048
     Dates: start: 20040701
  2. DIGOXIN [Concomitant]
     Indication: ATRIAL FIBRILLATION
     Route: 048
     Dates: start: 20040701
  3. METFORMIN [Concomitant]
     Indication: DIABETES MELLITUS
     Route: 048
     Dates: start: 20040701, end: 20060720
  4. FUROSEMIDE [Concomitant]
     Route: 048
     Dates: start: 20040701
  5. SIMVASTATIN [Concomitant]
     Indication: HYPERCHOLESTEROLAEMIA
     Route: 048
     Dates: start: 20040701, end: 20060720
  6. WARFARIN [Concomitant]
     Indication: THROMBOSIS PROPHYLAXIS
     Route: 048
     Dates: start: 20060701

REACTIONS (1)
  - ACUTE LEUKAEMIA [None]
